FAERS Safety Report 23818851 (Version 1)
Quarter: 2024Q2

REPORT INFORMATION
  Report Type: Spontaneous
  Country: FR (occurrence: FR)
  Receive Date: 20240506
  Receipt Date: 20240506
  Transmission Date: 20240716
  Serious: Yes (Hospitalization, Other)
  Sender: FDA-Public Use
  Company Number: FR-AFSSAPS-RS2024000384

PATIENT
  Age: 7 Year
  Sex: Female

DRUGS (1)
  1. TOPIRAMATE [Suspect]
     Active Substance: TOPIRAMATE
     Indication: Epilepsy
     Dosage: 70 MILLIGRAM, ONCE A DAY (35MG 2X/J)
     Route: 050
     Dates: start: 201611, end: 20240408

REACTIONS (1)
  - Renal tubular acidosis [Not Recovered/Not Resolved]

NARRATIVE: CASE EVENT DATE: 20230801
